FAERS Safety Report 5129257-9 (Version None)
Quarter: 2006Q4

REPORT INFORMATION
  Report Type: 
  Country: None (occurrence: None)
  Receive Date: 20061011
  Receipt Date: 20060927
  Transmission Date: 20070319
  Serious: No
  Sender: FDA-Public Use
  Company Number: 2006-148521-NL

PATIENT
  Age: 53 Year
  Sex: Female

DRUGS (3)
  1. MIRTAZAPINE [Suspect]
     Indication: DEPRESSION
     Dosage: 90 MG QD/60 MG QD ORAL
     Route: 048
     Dates: start: 20040101, end: 20060801
  2. MIRTAZAPINE [Suspect]
     Indication: DEPRESSION
     Dosage: 90 MG QD/60 MG QD ORAL
     Route: 048
     Dates: start: 20060801
  3. OLANZAPINE [Concomitant]

REACTIONS (1)
  - TACHYCARDIA [None]
